FAERS Safety Report 5676366-1 (Version None)
Quarter: 2008Q1

REPORT INFORMATION
  Report Type: 
  Country: None (occurrence: None)
  Receive Date: 20080321
  Receipt Date: 20080306
  Transmission Date: 20080703
  Serious: Yes (Other)
  Sender: FDA-Public Use
  Company Number: JP-GENENTECH-257804

PATIENT
  Sex: Male

DRUGS (4)
  1. AVASTIN [Suspect]
     Indication: RECTAL CANCER
     Dosage: 5 MG/KG, Q2W
     Route: 041
     Dates: start: 20080306, end: 20080306
  2. IRINOTECAN HCL [Suspect]
     Indication: RECTAL CANCER
     Dosage: UNK, UNK
     Route: 041
     Dates: start: 20080306, end: 20080306
  3. ISOVORIN [Concomitant]
     Indication: RECTAL CANCER
     Dates: start: 20080306, end: 20080306
  4. FLUOROURACIL [Concomitant]
     Indication: RECTAL CANCER
     Dates: start: 20080306, end: 20080306

REACTIONS (1)
  - ANAPHYLACTIC REACTION [None]
